FAERS Safety Report 8456552-8 (Version None)
Quarter: 2012Q2

REPORT INFORMATION
  Report Type: 
  Country: None (occurrence: None)
  Receive Date: 20120621
  Receipt Date: 20120618
  Transmission Date: 20120825
  Serious: Yes (Hospitalization)
  Sender: FDA-Public Use
  Company Number: US-MERCK-1201USA02273

PATIENT
  Age: 67 Year
  Sex: Female
  Weight: 66 kg

DRUGS (9)
  1. FOSAMAX [Suspect]
     Route: 048
     Dates: start: 20001201, end: 20060701
  2. CALCIUM (UNSPECIFIED) [Concomitant]
     Route: 065
     Dates: start: 19800101
  3. VITAMINS (UNSPECIFIED) [Concomitant]
     Route: 065
     Dates: start: 19800101
  4. ALENDRONATE SODIUM [Suspect]
     Indication: OSTEOPOROSIS
     Route: 048
     Dates: start: 20090205, end: 20100101
  5. EVISTA [Concomitant]
     Indication: OSTEOPOROSIS
     Route: 065
     Dates: start: 20000531, end: 20030117
  6. SYNTHROID [Concomitant]
     Indication: HYPOTHYROIDISM
     Route: 065
     Dates: start: 19800101
  7. SELECTIVE ESTROGEN RECEPTOR MODULATOR (UNSPECIFIED) [Concomitant]
     Route: 065
     Dates: start: 19991101, end: 20070101
  8. FOSAMAX [Suspect]
     Indication: OSTEOPOROSIS
     Route: 048
     Dates: start: 20000531, end: 20001213
  9. FOSAMAX PLUS D [Suspect]
     Indication: OSTEOPOROSIS
     Route: 048
     Dates: start: 20060809, end: 20090101

REACTIONS (23)
  - ADVERSE EVENT [None]
  - BLOOD CHOLESTEROL INCREASED [None]
  - VITAMIN D DEFICIENCY [None]
  - SYMPHYSIOLYSIS [None]
  - ROTATOR CUFF SYNDROME [None]
  - OSTEOARTHRITIS [None]
  - ARTHRITIS [None]
  - CATARACT [None]
  - TYPE V HYPERLIPIDAEMIA [None]
  - LOW TURNOVER OSTEOPATHY [None]
  - DRUG HYPERSENSITIVITY [None]
  - FALL [None]
  - FEMUR FRACTURE [None]
  - TENDON RUPTURE [None]
  - BRONCHITIS [None]
  - CERVICOBRACHIAL SYNDROME [None]
  - MENISCUS LESION [None]
  - APPENDIX DISORDER [None]
  - SPINAL OSTEOARTHRITIS [None]
  - COUGH [None]
  - CONTUSION [None]
  - ANKLE FRACTURE [None]
  - BLOOD CALCIUM DECREASED [None]
